FAERS Safety Report 19363961 (Version 2)
Quarter: 2021Q2

REPORT INFORMATION
  Report Type: Report from Study
  Country: None (occurrence: US)
  Receive Date: 20210603
  Receipt Date: 20210611
  Transmission Date: 20210717
  Serious: No
  Sender: FDA-Public Use
  Company Number: US-ABBVIE-21K-163-3927343-00

PATIENT
  Age: 34 Year
  Sex: Female
  Weight: 88.53 kg

DRUGS (1)
  1. HUMIRA [Suspect]
     Active Substance: ADALIMUMAB
     Indication: HIDRADENITIS
     Route: 058
     Dates: start: 2018

REACTIONS (4)
  - Gait disturbance [Unknown]
  - Pain [Unknown]
  - Joint dislocation [Unknown]
  - Mobility decreased [Unknown]

NARRATIVE: CASE EVENT DATE: 202104
